FAERS Safety Report 20379810 (Version 3)
Quarter: 2022Q1

REPORT INFORMATION
  Report Type: Spontaneous
  Country: US (occurrence: US)
  Receive Date: 20220126
  Receipt Date: 20220310
  Transmission Date: 20220423
  Serious: Yes (Death, Hospitalization, Other)
  Sender: FDA-Public Use
  Company Number: US-PFIZER INC-202200073589

PATIENT
  Age: 73 Year
  Sex: Female
  Weight: 92.517 kg

DRUGS (6)
  1. IBRANCE [Suspect]
     Active Substance: PALBOCICLIB
     Indication: Extramammary Paget^s disease
     Dosage: 125 MG, CYCLIC (1 TABLET 125MG 1  DAY FOR 21 DAYS THEN OFF 7 DAYS, THEN REPEAT.)
     Dates: start: 20211217, end: 20220104
  2. LETROZOLE [Suspect]
     Active Substance: LETROZOLE
     Indication: Extramammary Paget^s disease
     Dosage: 2.5 MG, 1X/DAY
     Dates: start: 20211217, end: 20220104
  3. DEXAMETHASONE [Suspect]
     Active Substance: DEXAMETHASONE
     Indication: Product used for unknown indication
     Dosage: UNK
     Dates: start: 20211217, end: 20220104
  4. NEUPOGEN [Suspect]
     Active Substance: FILGRASTIM
     Indication: Neutropenia
     Dosage: UNK
  5. ZOSYN [Concomitant]
     Active Substance: PIPERACILLIN SODIUM\TAZOBACTAM SODIUM
     Dosage: UNK
  6. VANCOMYCIN HYDROCHLORIDE [Concomitant]
     Active Substance: VANCOMYCIN HYDROCHLORIDE

REACTIONS (13)
  - Septic shock [Fatal]
  - Escherichia infection [Fatal]
  - Renal failure [Unknown]
  - Neutropenia [Unknown]
  - Fatigue [Unknown]
  - Dyspnoea [Unknown]
  - Blood test abnormal [Unknown]
  - Thrombosis [Unknown]
  - Febrile neutropenia [Unknown]
  - Off label use [Unknown]
  - Pain in extremity [Unknown]
  - Peripheral swelling [Unknown]
  - Pain [Unknown]

NARRATIVE: CASE EVENT DATE: 20211230
